FAERS Safety Report 4450988-8 (Version None)
Quarter: 2004Q3

REPORT INFORMATION
  Report Type: 
  Country: None (occurrence: None)
  Receive Date: 20040916
  Receipt Date: 20030309
  Transmission Date: 20050211
  Serious: Yes (Other)
  Sender: FDA-Public Use
  Company Number: US-BRISTOL-MYERS SQUIBB COMPANY-12527941

PATIENT
  Age: 4 Decade
  Sex: Female

DRUGS (7)
  1. STADOL [Suspect]
     Dosage: DURATION: MORE THAN 3 YEARS
     Route: 045
  2. STADOL [Suspect]
     Dosage: ROUTE: IM AND IV DURATION: MORE THAN 3 YEARS
     Route: 030
  3. ACETAMINOPHEN + CODEINE NO. 4 [Concomitant]
  4. HYDROCODONE + ACETAMINOPHEN [Concomitant]
  5. AMITRIPTYLINE HCL [Concomitant]
  6. NAPROXEN [Concomitant]
  7. PROMETHAZINE [Concomitant]

REACTIONS (2)
  - DEPENDENCE [None]
  - DRUG WITHDRAWAL SYNDROME [None]
